FAERS Safety Report 20912298 (Version 1)
Quarter: 2022Q2

REPORT INFORMATION
  Report Type: Report from Study
  Country: US (occurrence: None)
  Receive Date: 20220603
  Receipt Date: 20220603
  Transmission Date: 20220721
  Serious: Yes (Death)
  Sender: FDA-Public Use
  Company Number: 2022A204543

PATIENT
  Age: 20859 Day
  Sex: Male

DRUGS (1)
  1. LYNPARZA [Suspect]
     Active Substance: OLAPARIB
     Indication: Hepatocellular carcinoma
     Route: 048
     Dates: start: 20220122

REACTIONS (1)
  - Death [Fatal]

NARRATIVE: CASE EVENT DATE: 20220430
